FAERS Safety Report 13871668 (Version 2)
Quarter: 2018Q3

REPORT INFORMATION
  Report Type: Spontaneous
  Country: US (occurrence: US)
  Receive Date: 20170816
  Receipt Date: 20180817
  Transmission Date: 20181010
  Serious: Yes (Hospitalization, Other)
  Sender: FDA-Public Use
  Company Number: US-MYLANLABS-2017M1049472

PATIENT
  Age: 80 Year
  Sex: Male

DRUGS (1)
  1. SECBUTABARBITAL SODIUM [Suspect]
     Active Substance: BUTABARBITAL SODIUM
     Indication: TREMOR
     Dosage: 300 MG/DAY (DIVIDED DOSE) (10 TABLETS A DAY)
     Route: 048
     Dates: start: 1980

REACTIONS (7)
  - Hypertension [Recovered/Resolved]
  - Hypertensive crisis [Unknown]
  - Extra dose administered [Unknown]
  - Withdrawal syndrome [Not Recovered/Not Resolved]
  - Product use in unapproved indication [Unknown]
  - Tremor [Unknown]
  - Anxiety [Not Recovered/Not Resolved]

NARRATIVE: CASE EVENT DATE: 1980
